FAERS Safety Report 12431085 (Version 1)
Quarter: 2016Q2

REPORT INFORMATION
  Report Type: Spontaneous
  Country: DE (occurrence: DE)
  Receive Date: 20160603
  Receipt Date: 20160603
  Transmission Date: 20160815
  Serious: Yes (Other)
  Sender: FDA-Public Use
  Company Number: DE-AMGEN-DEUSP2014053052

PATIENT
  Age: 83 Year
  Sex: Female

DRUGS (5)
  1. INSULIN [Concomitant]
     Active Substance: INSULIN NOS
     Dosage: UNK
  2. MAGNESIUM [Concomitant]
     Active Substance: MAGNESIUM
     Dosage: UNK
  3. ENBREL [Suspect]
     Active Substance: ETANERCEPT
     Indication: RHEUMATOID ARTHRITIS
     Dosage: 50 MG, WEEKLY
     Route: 065
     Dates: start: 20140515
  4. SIMPONI [Suspect]
     Active Substance: GOLIMUMAB
     Indication: PRODUCT USED FOR UNKNOWN INDICATION
     Dosage: UNK
     Route: 065
  5. PREDNISOLON                        /00016201/ [Concomitant]
     Active Substance: PREDNISOLONE
     Dosage: 5 MG, UNK

REACTIONS (4)
  - Asthenia [Not Recovered/Not Resolved]
  - Drug intolerance [Unknown]
  - Arrhythmia [Not Recovered/Not Resolved]
  - Hyperhidrosis [Unknown]

NARRATIVE: CASE EVENT DATE: 20150510
